FAERS Safety Report 5119405-9 (Version None)
Quarter: 2006Q4

REPORT INFORMATION
  Report Type: 
  Country: None (occurrence: None)
  Receive Date: 20061003
  Receipt Date: 20060921
  Transmission Date: 20070319
  Serious: Yes (Life-Threatening)
  Sender: FDA-Public Use
  Company Number: GB-JNJFOC-20060905746

PATIENT
  Age: 3 Week
  Sex: Female
  Weight: 4.08 kg

DRUGS (1)
  1. DAKTARIN [Suspect]
     Indication: ORAL CANDIDIASIS
     Route: 048
     Dates: start: 20060707, end: 20060707

REACTIONS (2)
  - DYSPNOEA [None]
  - TONGUE DISORDER [None]
